FAERS Safety Report 9377997 (Version 1)
Quarter: 2013Q3

REPORT INFORMATION
  Report Type: Spontaneous
  Country: ES (occurrence: ES)
  Receive Date: 20130701
  Receipt Date: 20130701
  Transmission Date: 20140515
  Serious: Yes (Other)
  Sender: FDA-Public Use
  Company Number: ES-TEVA-414682ISR

PATIENT
  Sex: Female

DRUGS (1)
  1. CARBOPLATINOS TEVA 10 MG/ML CONCENTRADO PARA SOLUCION PARA PERFUSION [Suspect]
     Indication: OVARIAN CANCER
     Route: 042
     Dates: start: 2013

REACTIONS (11)
  - Erythema [Unknown]
  - Erythema [Unknown]
  - Dyspnoea [Unknown]
  - Abdominal pain upper [Unknown]
  - Nausea [Unknown]
  - Vomiting [Unknown]
  - Palpitations [Unknown]
  - Anxiety [Unknown]
  - Tremor [Unknown]
  - Skin lesion [Unknown]
  - Erythema [Unknown]
